FAERS Safety Report 17866542 (Version 1)
Quarter: 2020Q2

REPORT INFORMATION
  Report Type: Spontaneous
  Country: GB (occurrence: GB)
  Receive Date: 20200605
  Receipt Date: 20200605
  Transmission Date: 20200714
  Serious: Yes (Life-Threatening, Hospitalization, Other)
  Sender: FDA-Public Use
  Company Number: GB-TEVA-2020-GB-1244023

PATIENT
  Age: 61 Year
  Sex: Female
  Weight: 132 kg

DRUGS (20)
  1. SOLIFENACIN [Concomitant]
     Active Substance: SOLIFENACIN
  2. SITAGLIPTIN [Concomitant]
     Active Substance: SITAGLIPTIN
  3. WARFARIN [Suspect]
     Active Substance: WARFARIN
     Indication: AORTIC VALVE REPLACEMENT
     Dosage: 7MG
     Route: 048
     Dates: start: 20111209
  4. OMEPRAZOLE. [Concomitant]
     Active Substance: OMEPRAZOLE
  5. METFORMIN [Concomitant]
     Active Substance: METFORMIN HYDROCHLORIDE
  6. BUMETANIDE. [Concomitant]
     Active Substance: BUMETANIDE
     Indication: CARDIAC FAILURE CONGESTIVE
  7. NICOTINE. [Concomitant]
     Active Substance: NICOTINE
  8. CLOTRIMAZOLE. [Concomitant]
     Active Substance: CLOTRIMAZOLE
  9. ACETYLSALICYLIC ACID [Concomitant]
     Active Substance: ASPIRIN
  10. CITALOPRAM [Concomitant]
     Active Substance: CITALOPRAM HYDROBROMIDE
  11. ATORVASTATIN [Concomitant]
     Active Substance: ATORVASTATIN
  12. CO-AMOXICLAV [Interacting]
     Active Substance: AMOXICILLIN\CLAVULANATE POTASSIUM
     Indication: CELLULITIS
     Route: 065
  13. CLOTRIMAZOLE. [Concomitant]
     Active Substance: CLOTRIMAZOLE
  14. PARACETAMOL [Concomitant]
     Active Substance: ACETAMINOPHEN
  15. NICOTINE. [Concomitant]
     Active Substance: NICOTINE
  16. DIGOXIN. [Concomitant]
     Active Substance: DIGOXIN
  17. GLICLAZIDE [Concomitant]
     Active Substance: GLICLAZIDE
  18. LISINOPRIL. [Concomitant]
     Active Substance: LISINOPRIL
  19. BISOPROLOL FUMARATE. [Concomitant]
     Active Substance: BISOPROLOL FUMARATE
  20. SALBUTAMOL [Concomitant]
     Active Substance: ALBUTEROL

REACTIONS (8)
  - International normalised ratio increased [Recovered/Resolved]
  - Dyspnoea [Unknown]
  - Diarrhoea [Unknown]
  - Upper gastrointestinal haemorrhage [Unknown]
  - Productive cough [Unknown]
  - Drug interaction [Unknown]
  - Dizziness [Unknown]
  - Faeces discoloured [Unknown]

NARRATIVE: CASE EVENT DATE: 20200420
